FAERS Safety Report 4296431-3 (Version None)
Quarter: 2004Q1

REPORT INFORMATION
  Report Type: 
  Country: None (occurrence: None)
  Receive Date: 20040217
  Receipt Date: 20040209
  Transmission Date: 20041129
  Serious: Yes (Hospitalization)
  Sender: FDA-Public Use
  Company Number: 200410549FR

PATIENT
  Age: 73 Year
  Sex: Female

DRUGS (5)
  1. FUROSEMIDE [Suspect]
     Route: 048
     Dates: start: 19990601
  2. HYPERIUM 1 MG [Suspect]
     Route: 048
     Dates: start: 20010101
  3. NITROGLYCERIN [Suspect]
     Route: 023
     Dates: start: 20010101
  4. KARDEGIC 160 MG [Suspect]
     Route: 048
     Dates: start: 19991101
  5. MONO-TILDIEM - SLOW RELEASE [Suspect]
     Route: 048
     Dates: start: 20010101

REACTIONS (1)
  - RENAL FAILURE [None]
